FAERS Safety Report 6710751-1 (Version None)
Quarter: 2010Q2

REPORT INFORMATION
  Report Type: 
  Country: None (occurrence: None)
  Receive Date: 20100504
  Receipt Date: 20100504
  Transmission Date: 20101027
  Serious: Yes (Disabling)
  Sender: FDA-Public Use
  Company Number: None

PATIENT
  Age: 21 Year
  Sex: Male
  Weight: 108 kg

DRUGS (1)
  1. PALIPERIDONE 156MG/ML  N/A [Suspect]
     Indication: MAJOR DEPRESSION
     Dosage: 117 MG, IM
     Route: 030
     Dates: start: 20100406, end: 20100406

REACTIONS (2)
  - INJECTION SITE MASS [None]
  - INJECTION SITE PAIN [None]
